FAERS Safety Report 16082198 (Version 1)
Quarter: 2019Q1

REPORT INFORMATION
  Report Type: Spontaneous
  Country: US (occurrence: US)
  Receive Date: 20190317
  Receipt Date: 20190317
  Transmission Date: 20190418
  Serious: No
  Sender: FDA-Public Use
  Company Number: US-ASTRAZENECA-2019SE27866

PATIENT
  Sex: Female

DRUGS (1)
  1. BYDUREON BCISE [Suspect]
     Active Substance: EXENATIDE
     Route: 065

REACTIONS (5)
  - Product storage error [Unknown]
  - Device malfunction [Unknown]
  - Diabetes mellitus [Unknown]
  - Circumstance or information capable of leading to medication error [Unknown]
  - Intentional product misuse [Unknown]
